FAERS Safety Report 4588587-X (Version None)
Quarter: 2005Q1

REPORT INFORMATION
  Report Type: 
  Country: None (occurrence: None)
  Receive Date: 20050216
  Receipt Date: 20050216
  Transmission Date: 20050727
  Serious: Yes (Hospitalization)
  Sender: FDA-Public Use
  Company Number: None

PATIENT
  Age: 62 Year
  Sex: Female
  Weight: 60 kg

DRUGS (2)
  1. LAMICTAL [Suspect]
     Indication: AFFECTIVE DISORDER
     Dosage: 175 MG PO DAILY
     Route: 048
     Dates: start: 20040901, end: 20050101
  2. LAMICTAL [Suspect]

REACTIONS (6)
  - ALVEOLITIS ALLERGIC [None]
  - DRUG INEFFECTIVE [None]
  - HYPOTENSION [None]
  - HYPOTHERMIA [None]
  - MENTAL STATUS CHANGES [None]
  - THROMBOCYTOPENIA [None]
